FAERS Safety Report 25556543 (Version 1)
Quarter: 2025Q3

REPORT INFORMATION
  Report Type: Spontaneous
  Country: US (occurrence: US)
  Receive Date: 20250715
  Receipt Date: 20250715
  Transmission Date: 20251020
  Serious: No
  Sender: NOVO NORDISK
  Company Number: US-NOVOPROD-1315264

PATIENT

DRUGS (2)
  1. OZEMPIC [Suspect]
     Active Substance: SEMAGLUTIDE
     Indication: Product used for unknown indication
     Dosage: .25 MG, QW
     Route: 058
     Dates: start: 202408
  2. NovoFine Plus (32G) [Concomitant]
     Indication: Device therapy

REACTIONS (6)
  - Palpitations [Unknown]
  - Abdominal pain [Unknown]
  - Dysgeusia [Unknown]
  - Flatulence [Unknown]
  - Diarrhoea [Unknown]
  - Off label use [Unknown]
